FAERS Safety Report 7556379-5 (Version None)
Quarter: 2011Q2

REPORT INFORMATION
  Report Type: 
  Country: None (occurrence: None)
  Receive Date: 20110620
  Receipt Date: 20110607
  Transmission Date: 20111010
  Serious: Yes (Hospitalization, Other)
  Sender: FDA-Public Use
  Company Number: DE-ELI_LILLY_AND_COMPANY-DE201106001514

PATIENT
  Age: 79 Year
  Sex: Female

DRUGS (2)
  1. FORTEO [Suspect]
     Indication: OSTEOPOROSIS
     Dosage: UNK, QD
     Route: 058
     Dates: start: 20100601
  2. ANALGESICS [Concomitant]
     Dosage: UNK
     Route: 065

REACTIONS (3)
  - OVARIAN CANCER [None]
  - FATIGUE [None]
  - MUSCULAR WEAKNESS [None]
